FAERS Safety Report 23135022 (Version 1)
Quarter: 2023Q4

REPORT INFORMATION
  Report Type: Spontaneous
  Country: US (occurrence: None)
  Receive Date: 20231031
  Receipt Date: 20231031
  Transmission Date: 20240110
  Serious: Yes (Other)
  Sender: FDA-Public Use
  Company Number: None

PATIENT
  Sex: Male

DRUGS (12)
  1. KESIMPTA [Suspect]
     Active Substance: OFATUMUMAB
     Indication: Multiple sclerosis
     Dosage: OTHER QUANTITY : 20/0.4 MG/ML;?FREQUENCY : 3 TIMES A DAY;?INJECT 1 PEN UNDER THE SKIN (SUBCUTANEOUS
     Route: 058
     Dates: start: 20220927
  2. AMMONIUM LAC CRE 12% [Concomitant]
  3. ATORVASTATIN [Concomitant]
     Active Substance: ATORVASTATIN
  4. CHLORHEX GLU SOL 0.12% [Concomitant]
  5. GABAPENTIN [Concomitant]
     Active Substance: GABAPENTIN
  6. MELOXICAM [Concomitant]
     Active Substance: MELOXICAM
  7. METHYLPREDNISOLONE [Concomitant]
     Active Substance: METHYLPREDNISOLONE
  8. MULTIPLE VIT [Concomitant]
  9. FISH OIL [Concomitant]
     Active Substance: FISH OIL
  10. PANTOPRAZOLE [Concomitant]
     Active Substance: PANTOPRAZOLE
  11. SILDENAFIL [Concomitant]
     Active Substance: SILDENAFIL
  12. VITAMIN D3 [Concomitant]
     Active Substance: CHOLECALCIFEROL

REACTIONS (6)
  - Fatigue [None]
  - Appendicectomy [None]
  - Muscle spasticity [None]
  - Muscle tightness [None]
  - Muscle spasms [None]
  - Joint stiffness [None]
